FAERS Safety Report 9886669 (Version 4)
Quarter: 2015Q1

REPORT INFORMATION
  Report Type: Spontaneous
  Country: US (occurrence: US)
  Receive Date: 20140210
  Receipt Date: 20150122
  Transmission Date: 20150721
  Serious: Yes (Hospitalization, Other)
  Sender: FDA-Public Use
  Company Number: US-009507513-1402USA004326

PATIENT
  Sex: Female
  Weight: 73.16 kg

DRUGS (1)
  1. NUVARING [Suspect]
     Active Substance: ETHINYL ESTRADIOL\ETONOGESTREL
     Indication: POLYCYSTIC OVARIES
     Dosage: UNK
     Route: 067
     Dates: start: 20090815, end: 201009

REACTIONS (20)
  - Pulmonary embolism [Unknown]
  - May-Thurner syndrome [Unknown]
  - Salpingo-oophorectomy unilateral [Unknown]
  - Blood testosterone decreased [Unknown]
  - Hypercoagulation [Not Recovered/Not Resolved]
  - Anxiety [Unknown]
  - Venous stent insertion [Unknown]
  - Adenomyosis [Unknown]
  - Hysterectomy [Unknown]
  - Deep vein thrombosis [Recovering/Resolving]
  - Liposuction [Unknown]
  - Muscle spasms [Recovered/Resolved]
  - Depression [Unknown]
  - Alopecia [Unknown]
  - Endometrial ablation [Unknown]
  - Liver function test abnormal [Unknown]
  - Off label use [Recovered/Resolved]
  - Platelet disorder [Not Recovered/Not Resolved]
  - Sleep disorder [Unknown]
  - Gastrooesophageal reflux disease [Unknown]

NARRATIVE: CASE EVENT DATE: 20090815
